FAERS Safety Report 25627845 (Version 2)
Quarter: 2025Q3

REPORT INFORMATION
  Report Type: Spontaneous
  Country: US (occurrence: US)
  Receive Date: 20250731
  Receipt Date: 20250808
  Transmission Date: 20251020
  Serious: No
  Sender: BAYER HEALTHCARE PHARMACEUTICALS INC.
  Company Number: US-BAYER-2025A094529

PATIENT
  Age: 27 Year
  Sex: Male
  Weight: 104.76 kg

DRUGS (1)
  1. CIPRO [Suspect]
     Active Substance: CIPROFLOXACIN HYDROCHLORIDE
     Indication: Urinary tract infection
     Dosage: 1 DF, BID
     Route: 048
     Dates: start: 20250518, end: 20250520

REACTIONS (10)
  - Muscular weakness [Recovering/Resolving]
  - Burning sensation [Recovering/Resolving]
  - Muscle twitching [Recovering/Resolving]
  - Muscle tightness [Recovered/Resolved with Sequelae]
  - Gait disturbance [Recovering/Resolving]
  - Hypoaesthesia [Recovering/Resolving]
  - Nausea [Recovering/Resolving]
  - Pain [Recovering/Resolving]
  - Nerve injury [Recovering/Resolving]
  - Dizziness [None]

NARRATIVE: CASE EVENT DATE: 20250101
